FAERS Safety Report 5671202-1 (Version None)
Quarter: 2008Q1

REPORT INFORMATION
  Report Type: 
  Country: None (occurrence: None)
  Receive Date: 20080318
  Receipt Date: 20080307
  Transmission Date: 20080703
  Serious: Yes (Hospitalization, Other)
  Sender: FDA-Public Use
  Company Number: JP-ELI_LILLY_AND_COMPANY-JP200803002095

PATIENT
  Sex: Female
  Weight: 45 kg

DRUGS (5)
  1. EVISTA [Suspect]
     Indication: OSTEOPOROSIS POSTMENOPAUSAL
     Dosage: 60 MG, DAILY (1/D)
     Route: 048
     Dates: start: 20070327, end: 20080202
  2. LORCAM [Concomitant]
     Dosage: 4 MG, 2/D
     Route: 048
     Dates: start: 20061221, end: 20080202
  3. CYTOTEC [Concomitant]
     Indication: GASTRITIS PROPHYLAXIS
     Dosage: 200 UG, 2/D
     Route: 048
     Dates: start: 20061221, end: 20080202
  4. ADOFEED [Concomitant]
     Dosage: 1 D/F, 2/D
     Route: 062
     Dates: start: 20070327, end: 20080202
  5. VOLTAREN [Concomitant]
     Dosage: UNK, DAILY (1/D)
     Route: 062
     Dates: start: 20070424, end: 20080202

REACTIONS (2)
  - ANAEMIA [None]
  - PLATELET COUNT DECREASED [None]
